FAERS Safety Report 8252192-4 (Version None)
Quarter: 2012Q2

REPORT INFORMATION
  Report Type: 
  Country: None (occurrence: None)
  Receive Date: 20120402
  Receipt Date: 20110419
  Transmission Date: 20120825
  Serious: No
  Sender: FDA-Public Use
  Company Number: US-ABBOTT-11P-163-0804465-00

PATIENT
  Sex: Male
  Weight: 101.36 kg

DRUGS (10)
  1. MELOXICAM [Concomitant]
     Indication: ARTHRITIS
  2. FUROSEMIDE [Concomitant]
     Indication: OEDEMA PERIPHERAL
     Dosage: DAILY DOSE:  UNKNOWN, AS USED: 20, FREQUENCY: ONCE A DAY
     Route: 065
  3. MELOXICAM [Concomitant]
     Indication: SWELLING
     Dosage: DAILY DOSE:  UNKNOWN
     Route: 065
  4. SENNA ALEXANDRINA [Concomitant]
     Indication: BOWEL MOVEMENT IRREGULARITY
     Dosage: DAILY DOSE:  UNKNOWN
     Route: 065
  5. ATENOLOL [Concomitant]
     Indication: TACHYCARDIA
     Dosage: DAILY DOSE:  UNKNOWN; AS USED: 50
     Route: 065
  6. ASCORBIC ACID AND ERGOCALCIFEROL AND FOLIC ACID AND NICOTINAMIDE AND P [Concomitant]
     Indication: SUPPLEMENTATION THERAPY
     Dosage: DAILY DOSE:  UNKNOWN
     Route: 065
  7. TESTOSTERONE [Suspect]
     Indication: BLOOD TESTOSTERONE DECREASED
     Dosage: DAILY DOSE:  UNKNOWN; 4 PUMPS PER SIDE
     Route: 062
     Dates: start: 20110201
  8. ACETYLSALICYLIC ACID [Concomitant]
     Indication: CARDIAC DISORDER
     Dosage: DAILY DOSE:  UNKNOWN; AS USED: 81 MILLIGRAM(S)
     Route: 065
  9. ALPRAZOLAM [Concomitant]
     Indication: ANXIETY
     Dosage: DAILY DOSE:  UNKNOWN; FREQUENCY: AS NEEDED
     Route: 065
  10. PRAVASTATIN [Concomitant]
     Indication: BLOOD CHOLESTEROL INCREASED
     Dosage: DAILY DOSE:  UNKNOWN; AS USED: 40
     Route: 065

REACTIONS (5)
  - URINE OUTPUT DECREASED [None]
  - EJACULATION DISORDER [None]
  - OEDEMA PERIPHERAL [None]
  - HYPERAESTHESIA [None]
  - NOCTURIA [None]
